FAERS Safety Report 7291376-9 (Version None)
Quarter: 2011Q1

REPORT INFORMATION
  Report Type: 
  Country: None (occurrence: None)
  Receive Date: 20110214
  Receipt Date: 20110209
  Transmission Date: 20110831
  Serious: Yes (Other)
  Sender: FDA-Public Use
  Company Number: B0697118A

PATIENT
  Sex: Female
  Weight: 57 kg

DRUGS (7)
  1. TYKERB [Suspect]
     Route: 048
     Dates: start: 20101101, end: 20101101
  2. XELODA [Concomitant]
     Dosage: 2400MG PER DAY
     Route: 048
     Dates: start: 20100329
  3. TYKERB [Suspect]
     Dosage: 1250MG PER DAY
     Route: 048
     Dates: end: 20101013
  4. ZOMETA [Concomitant]
     Route: 042
  5. TYKERB [Suspect]
     Indication: BREAST CANCER
     Dosage: 1500MG PER DAY
     Route: 048
     Dates: start: 20100329
  6. XELODA [Concomitant]
     Dosage: 1800MG PER DAY
     Route: 048
     Dates: start: 20100503, end: 20101013
  7. XELODA [Concomitant]
     Route: 048
     Dates: start: 20101101, end: 20101101

REACTIONS (1)
  - JAUNDICE CHOLESTATIC [None]
